FAERS Safety Report 10008659 (Version 1)
Quarter: 2014Q1

REPORT INFORMATION
  Report Type: Spontaneous
  Country: US (occurrence: US)
  Receive Date: 20140312
  Receipt Date: 20140312
  Transmission Date: 20141002
  Serious: No
  Sender: FDA-Public Use
  Company Number: US-INCYTE CORPORATION-2012IN000161

PATIENT
  Sex: Male

DRUGS (4)
  1. JAKAFI [Suspect]
     Indication: MYELOFIBROSIS
     Dosage: 20 MG, BID
     Route: 048
     Dates: start: 20120104
  2. SYNTHROID [Concomitant]
     Dosage: UNK
  3. ULORIC [Concomitant]
     Dosage: UNK
  4. PEPCID [Concomitant]
     Dosage: UNK

REACTIONS (3)
  - Pain in extremity [None]
  - Local swelling [None]
  - Hypoaesthesia [None]
